FAERS Safety Report 6531458-X (Version None)
Quarter: 2009Q4

REPORT INFORMATION
  Report Type: 
  Country: None (occurrence: None)
  Receive Date: 20091222
  Receipt Date: 20091025
  Transmission Date: 20100525
  Serious: No
  Sender: FDA-Public Use
  Company Number: ALL1-2009-03340

PATIENT
  Sex: Female

DRUGS (1)
  1. VYVANSE [Suspect]
     Indication: DRUG USE FOR UNKNOWN INDICATION
     Dosage: 1X/DAY:QD, ORAL
     Route: 048
     Dates: start: 20091022

REACTIONS (4)
  - ANXIETY [None]
  - FEELING ABNORMAL [None]
  - INSOMNIA [None]
  - TIC [None]
